FAERS Safety Report 8453035-6 (Version None)
Quarter: 2012Q2

REPORT INFORMATION
  Report Type: 
  Country: None (occurrence: None)
  Receive Date: 20120620
  Receipt Date: 20120504
  Transmission Date: 20120825
  Serious: No
  Sender: FDA-Public Use
  Company Number: US-VERTEX PHARMACEUTICALS INC.-AE-2012-006519

PATIENT
  Age: 49 Year
  Sex: Male

DRUGS (9)
  1. ASPIRIN [Concomitant]
  2. NOVOLOG [Concomitant]
  3. INCIVEK [Suspect]
     Indication: HEPATITIS C
     Route: 048
     Dates: start: 20120428
  4. PEGASYS [Concomitant]
     Indication: HEPATITIS C
     Dates: start: 20120428
  5. LANTUS [Concomitant]
  6. RIBAVIRIN [Concomitant]
     Indication: HEPATITIS C
     Dates: start: 20120428
  7. LOSARTAN POTASSIUM [Concomitant]
  8. LORTAB [Concomitant]
  9. NORVASC [Concomitant]

REACTIONS (5)
  - ASTHENIA [None]
  - INCORRECT DRUG ADMINISTRATION DURATION [None]
  - FATIGUE [None]
  - NAUSEA [None]
  - MALAISE [None]
